FAERS Safety Report 11878579 (Version 2)
Quarter: 2016Q1

REPORT INFORMATION
  Report Type: Spontaneous
  Country: US (occurrence: US)
  Receive Date: 20151230
  Receipt Date: 20160104
  Transmission Date: 20160526
  Serious: No
  Sender: FDA-Public Use
  Company Number: US-009507513-1512USA012387

PATIENT
  Sex: Male

DRUGS (6)
  1. SLO-NIACIN [Suspect]
     Active Substance: DIETARY SUPPLEMENT
     Indication: BLOOD CHOLESTEROL INCREASED
     Dosage: 500 MG, ONCE DAILY
     Route: 048
     Dates: end: 201512
  2. ERGOCALCIFEROL. [Concomitant]
     Active Substance: ERGOCALCIFEROL
     Dosage: UNK
  3. ZOCOR [Suspect]
     Active Substance: SIMVASTATIN
     Indication: BLOOD CHOLESTEROL INCREASED
     Dosage: UNK
     Route: 048
     Dates: end: 2013
  4. DOXAZOSIN MESYLATE. [Concomitant]
     Active Substance: DOXAZOSIN MESYLATE
     Dosage: UNK
  5. ASPIRIN. [Concomitant]
     Active Substance: ASPIRIN
     Dosage: UNK
  6. SLO-NIACIN [Suspect]
     Active Substance: DIETARY SUPPLEMENT
     Dosage: 1000 MG, QD
     Route: 048
     Dates: start: 201512

REACTIONS (3)
  - Skin burning sensation [Not Recovered/Not Resolved]
  - Erythema [Not Recovered/Not Resolved]
  - Skin hypopigmentation [Not Recovered/Not Resolved]

NARRATIVE: CASE EVENT DATE: 2012
